FAERS Safety Report 9125838 (Version 1)
Quarter: 2013Q1

REPORT INFORMATION
  Report Type: Spontaneous
  Country: US (occurrence: US)
  Receive Date: 20130121
  Receipt Date: 20130121
  Transmission Date: 20140127
  Serious: Yes (Death, Hospitalization)
  Sender: FDA-Public Use
  Company Number: US-JNJFOC-20130106630

PATIENT
  Age: 32 Year
  Sex: Male

DRUGS (3)
  1. DIPHENHYDRAMINE [Suspect]
     Indication: SUICIDE ATTEMPT
     Route: 048
  2. EPINEPHRINE [Concomitant]
     Indication: ANAPHYLACTOID REACTION
     Route: 065
  3. MIDAZOLAM [Concomitant]
     Indication: ANAPHYLACTOID REACTION
     Route: 065

REACTIONS (6)
  - Toxicity to various agents [Fatal]
  - Respiratory arrest [None]
  - Completed suicide [None]
  - Anaphylactoid reaction [None]
  - Cardiac arrest [None]
  - Overdose [None]
